FAERS Safety Report 5033105-5 (Version None)
Quarter: 2006Q2

REPORT INFORMATION
  Report Type: 
  Country: None (occurrence: None)
  Receive Date: 20060620
  Receipt Date: 20060613
  Transmission Date: 20061013
  Serious: Yes (Hospitalization, Other)
  Sender: FDA-Public Use
  Company Number: US200606000056

PATIENT
  Age: 72 Year
  Sex: Male

DRUGS (2)
  1. CYMBALTA [Suspect]
     Dates: start: 20060501, end: 20060501
  2. AMOXICILLIN [Concomitant]

REACTIONS (4)
  - COLITIS [None]
  - HEPATITIS [None]
  - IDIOSYNCRATIC DRUG REACTION [None]
  - PROTHROMBIN TIME PROLONGED [None]
